FAERS Safety Report 8494840-X (Version None)
Quarter: 2012Q3

REPORT INFORMATION
  Report Type: 
  Country: None (occurrence: None)
  Receive Date: 20120709
  Receipt Date: 20120705
  Transmission Date: 20120928
  Serious: Yes (Other)
  Sender: FDA-Public Use
  Company Number: US-PFIZER INC-2012162325

PATIENT
  Sex: Male

DRUGS (1)
  1. CHANTIX [Suspect]
     Dosage: UNK
     Route: 048

REACTIONS (8)
  - PANIC ATTACK [None]
  - THINKING ABNORMAL [None]
  - AGGRESSION [None]
  - ANXIETY [None]
  - SUICIDAL IDEATION [None]
  - MAJOR DEPRESSION [None]
  - ANGER [None]
  - FEELING ABNORMAL [None]
